FAERS Safety Report 24563044 (Version 7)
Quarter: 2025Q3

REPORT INFORMATION
  Report Type: Report from Study
  Country: JP (occurrence: JP)
  Receive Date: 20241030
  Receipt Date: 20250919
  Transmission Date: 20251021
  Serious: Yes (Other)
  Sender: ABBVIE
  Company Number: JP-TAKEDA-2024TJP015403

PATIENT
  Age: 42 Year
  Sex: Male
  Weight: 92 kg

DRUGS (4)
  1. LEUPROLIDE ACETATE [Suspect]
     Active Substance: LEUPROLIDE ACETATE
     Indication: Bulbospinal muscular atrophy congenital
     Dosage: 11.25 MILLIGRAM, EVERY 3 MONTHS
     Route: 058
     Dates: start: 20220216
  2. MEXILETINE HYDROCHLORIDE [Concomitant]
     Active Substance: MEXILETINE HYDROCHLORIDE
     Indication: Product used for unknown indication
     Route: 065
  3. JANUVIA [Concomitant]
     Active Substance: SITAGLIPTIN PHOSPHATE
     Indication: Product used for unknown indication
     Dates: start: 20220819, end: 20220909
  4. JANUVIA [Concomitant]
     Active Substance: SITAGLIPTIN PHOSPHATE
     Indication: Product used for unknown indication
     Dates: start: 20220910

REACTIONS (1)
  - Diabetes mellitus [Not Recovered/Not Resolved]

NARRATIVE: CASE EVENT DATE: 20220513
